FAERS Safety Report 7179893-3 (Version None)
Quarter: 2010Q4

REPORT INFORMATION
  Report Type: 
  Country: None (occurrence: None)
  Receive Date: 20101221
  Receipt Date: 20101215
  Transmission Date: 20110411
  Serious: Yes (Other)
  Sender: FDA-Public Use
  Company Number: US-AMGEN-USASP2010009679

PATIENT

DRUGS (3)
  1. NPLATE [Suspect]
     Indication: THROMBOCYTOPENIA
     Dates: start: 20100621, end: 20100716
  2. CORTICOSTEROIDS [Concomitant]
  3. DANAZOL [Concomitant]

REACTIONS (2)
  - ANGIOEDEMA [None]
  - DRUG INEFFECTIVE [None]
